FAERS Safety Report 8550905 (Version 6)
Quarter: 2021Q2

REPORT INFORMATION
  Report Type: Report from Study
  Country: CA (occurrence: CA)
  Receive Date: 20120508
  Receipt Date: 20210424
  Transmission Date: 20210717
  Serious: Yes (Hospitalization)
  Sender: FDA-Public Use
  Company Number: PHHY2011CA111617

PATIENT
  Age: 30 Year
  Sex: Female

DRUGS (5)
  1. SANDOSTATIN LAR DEPOT [Suspect]
     Active Substance: OCTREOTIDE ACETATE
     Dosage: 30 MG, Q3W
     Route: 058
     Dates: start: 201210, end: 2014
  2. SANDOSTATIN LAR DEPOT [Suspect]
     Active Substance: OCTREOTIDE ACETATE
     Indication: ACRAL OVERGROWTH
     Dosage: 20 MG, QMO
     Route: 030
     Dates: start: 20111128
  3. SOMAVERT [Concomitant]
     Active Substance: PEGVISOMANT
     Indication: PRODUCT USED FOR UNKNOWN INDICATION
     Dosage: UNK
     Route: 058
     Dates: start: 2014
  4. SANDOSTATIN LAR DEPOT [Suspect]
     Active Substance: OCTREOTIDE ACETATE
     Dosage: 20 MG, EVERY 4 WEEKS
     Route: 030
  5. SANDOSTATIN LAR DEPOT [Suspect]
     Active Substance: OCTREOTIDE ACETATE
     Dosage: 30 MG, Q3W
     Route: 030

REACTIONS (15)
  - Pain in extremity [Unknown]
  - Hepatic enzyme increased [Unknown]
  - Injection site swelling [Unknown]
  - Depression [Recovering/Resolving]
  - Mental disorder [Unknown]
  - Headache [Unknown]
  - Pain in jaw [Unknown]
  - Body temperature decreased [Unknown]
  - Anxiety [Unknown]
  - Cholelithiasis [Unknown]
  - Jaw clicking [Recovering/Resolving]
  - Insulin-like growth factor increased [Recovering/Resolving]
  - Blood growth hormone releasing hormone increased [Recovering/Resolving]
  - Ingrown hair [Unknown]
  - Inappropriate schedule of product administration [Unknown]

NARRATIVE: CASE EVENT DATE: 201210
